FAERS Safety Report 4759536-6 (Version None)
Quarter: 2005Q3

REPORT INFORMATION
  Report Type: 
  Country: None (occurrence: None)
  Receive Date: 20050901
  Receipt Date: 20031121
  Transmission Date: 20060218
  Serious: Yes (Hospitalization, Disabling)
  Sender: FDA-Public Use
  Company Number: US-MERCK-0311USA02546

PATIENT
  Age: 44 Year
  Sex: Female
  Weight: 104 kg

DRUGS (14)
  1. VIOXX [Suspect]
     Indication: ARTHRITIS
     Route: 048
     Dates: start: 20001001
  2. VIOXX [Suspect]
     Route: 048
     Dates: end: 20020901
  3. VIOXX [Suspect]
     Route: 048
     Dates: start: 20010720, end: 20010920
  4. VIOXX [Suspect]
     Indication: PAIN
     Route: 048
     Dates: start: 20001001
  5. VIOXX [Suspect]
     Route: 048
     Dates: end: 20020901
  6. VIOXX [Suspect]
     Route: 048
     Dates: start: 20010720, end: 20010920
  7. PAXIL [Concomitant]
     Indication: SLEEP DISORDER
     Route: 065
     Dates: start: 20001001, end: 20010701
  8. MOTRIN [Concomitant]
     Indication: PAIN
     Route: 065
     Dates: start: 19960601, end: 20030201
  9. ALEVE [Concomitant]
     Route: 065
     Dates: start: 19960601, end: 20030201
  10. TYLENOL [Concomitant]
     Indication: PAIN
     Route: 065
     Dates: start: 19960601, end: 20030201
  11. GLYBURIDE [Concomitant]
     Route: 065
  12. ASPIRIN [Concomitant]
     Indication: PROPHYLAXIS
     Route: 065
  13. [THERAPY UNSPECIFIED] [Concomitant]
     Indication: HYPERTENSION
     Route: 065
     Dates: start: 20010701, end: 20010801
  14. CELEBREX [Concomitant]
     Route: 065

REACTIONS (27)
  - ACUTE MYOCARDIAL INFARCTION [None]
  - ALCOHOLISM [None]
  - AORTIC VALVE INCOMPETENCE [None]
  - BACK INJURY [None]
  - CARDIAC MURMUR [None]
  - CELLULITIS [None]
  - CEREBROVASCULAR ACCIDENT [None]
  - CONCUSSION [None]
  - EMOTIONAL DISORDER [None]
  - EMOTIONAL DISTRESS [None]
  - GOUT [None]
  - HYPOAESTHESIA [None]
  - HYPOKALAEMIA [None]
  - INJURY [None]
  - MENTAL DISORDER [None]
  - MITRAL VALVE INCOMPETENCE [None]
  - MYOCARDIAL ISCHAEMIA [None]
  - NAUSEA [None]
  - NOCTURIA [None]
  - OEDEMA PERIPHERAL [None]
  - PAIN IN EXTREMITY [None]
  - PALPITATIONS [None]
  - PULMONARY VALVE INCOMPETENCE [None]
  - RENAL DISORDER [None]
  - RHABDOMYOLYSIS [None]
  - TRICUSPID VALVE INCOMPETENCE [None]
  - VARICOSE VEIN [None]
